FAERS Safety Report 11922608 (Version 5)
Quarter: 2016Q2

REPORT INFORMATION
  Report Type: Report from Study
  Country: US (occurrence: US)
  Receive Date: 20160115
  Receipt Date: 20160601
  Transmission Date: 20160815
  Serious: Yes (Hospitalization, Disabling, Other)
  Sender: FDA-Public Use
  Company Number: US-ACTELION-A-NJ2016-130097

PATIENT
  Age: 49 Year
  Sex: Female
  Weight: 72.56 kg

DRUGS (6)
  1. LASIX [Concomitant]
     Active Substance: FUROSEMIDE
  2. TRACLEER [Suspect]
     Active Substance: BOSENTAN
     Indication: PULMONARY ARTERIAL HYPERTENSION
     Dosage: 125 MG, BID
     Route: 048
     Dates: start: 20141113
  3. VENTAVIS [Suspect]
     Active Substance: ILOPROST
     Dosage: 5 MCG, 5-6 X/ADAY
     Route: 055
  4. SILDENAFIL. [Concomitant]
     Active Substance: SILDENAFIL
     Indication: PULMONARY ARTERIAL HYPERTENSION
  5. DIURIL [Concomitant]
     Active Substance: CHLOROTHIAZIDE
  6. VENTAVIS [Suspect]
     Active Substance: ILOPROST
     Indication: PULMONARY ARTERIAL HYPERTENSION
     Dosage: 5 MCG, 6-9X/DAY
     Route: 055
     Dates: start: 20110714

REACTIONS (6)
  - Atrial fibrillation [Unknown]
  - Fluid overload [Unknown]
  - Proteinuria [Unknown]
  - Fluid retention [Recovering/Resolving]
  - Blood creatinine increased [Recovering/Resolving]
  - Cardiac failure congestive [Unknown]
